FAERS Safety Report 19164284 (Version 1)
Quarter: 2021Q2

REPORT INFORMATION
  Report Type: Other
  Country: US (occurrence: US)
  Receive Date: 20210421
  Receipt Date: 20210421
  Transmission Date: 20210717
  Serious: Yes (Death)
  Sender: FDA-Public Use
  Company Number: US-ALKERMES INC.-ALK-2020-005311

PATIENT
  Sex: Male

DRUGS (2)
  1. VIVITROL [Suspect]
     Active Substance: NALTREXONE
     Dosage: UNK
  2. VIVITROL [Suspect]
     Active Substance: NALTREXONE
     Indication: PAIN
     Dosage: 380 MILLIGRAM, QMO
     Route: 030
     Dates: start: 2010

REACTIONS (8)
  - Overdose [Fatal]
  - Ankle fracture [Fatal]
  - Drug abuse [Fatal]
  - Death [Fatal]
  - Off label use [Not Recovered/Not Resolved]
  - Drug dependence [Fatal]
  - Panic attack [Fatal]
  - Fall [Fatal]

NARRATIVE: CASE EVENT DATE: 2010
